FAERS Safety Report 7560404-5 (Version None)
Quarter: 2011Q2

REPORT INFORMATION
  Report Type: 
  Country: None (occurrence: None)
  Receive Date: 20110621
  Receipt Date: 20110614
  Transmission Date: 20111010
  Serious: Yes (Life-Threatening, Hospitalization)
  Sender: FDA-Public Use
  Company Number: DE-B.I. PHARMACEUTICALS,INC./RIDGEFIELD-2011-DE-03574DE

PATIENT
  Sex: Female
  Weight: 80 kg

DRUGS (7)
  1. KATZENINSULIN [Suspect]
     Route: 058
  2. LOSARTAN POTASSIUM [Suspect]
     Route: 048
  3. TELMISARTAN [Suspect]
     Route: 048
  4. SOTALOL 80 [Suspect]
     Dosage: 30 ANZ
     Route: 048
  5. BISOPROLOL FUMARATE [Suspect]
     Route: 048
  6. ASPIRIN [Suspect]
     Route: 048
  7. MICARDIS HCT [Suspect]
     Route: 048

REACTIONS (9)
  - TORSADE DE POINTES [None]
  - HYPOTENSION [None]
  - RENAL FAILURE [None]
  - SUICIDE ATTEMPT [None]
  - ELECTROCARDIOGRAM QT PROLONGED [None]
  - ARRHYTHMIA [None]
  - HYPOGLYCAEMIA [None]
  - GASTRIC ATONY [None]
  - SYNCOPE [None]
